FAERS Safety Report 15540203 (Version 1)
Quarter: 2018Q4

REPORT INFORMATION
  Report Type: Report from Study
  Country: GB (occurrence: GB)
  Receive Date: 20181023
  Receipt Date: 20181023
  Transmission Date: 20190205
  Serious: Yes (Other)
  Sender: FDA-Public Use
  Company Number: GB-SUN PHARMACEUTICAL INDUSTRIES LTD-2017RR-157819

PATIENT
  Age: 45 Year
  Sex: Female

DRUGS (1)
  1. CODEINE [Suspect]
     Active Substance: CODEINE
     Indication: ANALGESIC THERAPY
     Dosage: UNK
     Route: 065

REACTIONS (4)
  - Angioedema [Unknown]
  - Pruritus generalised [Unknown]
  - Rash [Unknown]
  - Drug hypersensitivity [Unknown]
